FAERS Safety Report 11255976 (Version 2)
Quarter: 2017Q4

REPORT INFORMATION
  Report Type: Report from Study
  Country: IT (occurrence: IT)
  Receive Date: 20150709
  Receipt Date: 20171009
  Transmission Date: 20180320
  Serious: Yes (Death, Hospitalization)
  Sender: FDA-Public Use
  Company Number: PHHO2009IT12446

PATIENT
  Age: 78 Year
  Sex: Female
  Weight: 55 kg

DRUGS (2)
  1. LBH589 [Suspect]
     Active Substance: PANOBINOSTAT
     Indication: PLASMA CELL MYELOMA
     Dosage: 15 MG, UNK
     Route: 048
     Dates: start: 20090601
  2. MPT COMP-MPT+ [Suspect]
     Active Substance: MELPHALAN\PREDNISONE\THALIDOMIDE
     Indication: PLASMA CELL MYELOMA
     Dosage: 15 MG TALIDOMIDE AND 25 MG MELPHALAN
     Route: 048
     Dates: start: 20090601

REACTIONS (5)
  - Pyrexia [Fatal]
  - Septic shock [Fatal]
  - Renal failure [Fatal]
  - Neutropenia [Fatal]
  - Febrile neutropenia [Fatal]

NARRATIVE: CASE EVENT DATE: 20090929
